FAERS Safety Report 13962029 (Version 3)
Quarter: 2017Q4

REPORT INFORMATION
  Report Type: Spontaneous
  Country: CA (occurrence: CA)
  Receive Date: 20170912
  Receipt Date: 20171129
  Transmission Date: 20180320
  Serious: Yes (Other)
  Sender: FDA-Public Use
  Company Number: CA-MYLANLABS-2017M1056853

PATIENT
  Sex: Male

DRUGS (2)
  1. MYLAN-DIVALPROEX [Suspect]
     Active Substance: DIVALPROEX SODIUM
     Indication: SCHIZOPHRENIA
     Dosage: UNK
  2. MYLAN-DIVALPROEX [Suspect]
     Active Substance: DIVALPROEX SODIUM
     Indication: CRANIOCEREBRAL INJURY

REACTIONS (5)
  - Feeling abnormal [Recovering/Resolving]
  - Weight increased [Recovering/Resolving]
  - Drug ineffective [Recovering/Resolving]
  - Condition aggravated [Recovering/Resolving]
  - Schizophrenia [Recovering/Resolving]
